FAERS Safety Report 19228195 (Version 5)
Quarter: 2022Q2

REPORT INFORMATION
  Report Type: Spontaneous
  Country: JP (occurrence: JP)
  Receive Date: 20210506
  Receipt Date: 20220616
  Transmission Date: 20220721
  Serious: Yes (Life-Threatening, Hospitalization, Other)
  Sender: FDA-Public Use
  Company Number: JP-BRISTOL-MYERS SQUIBB COMPANY-BMS-2021-027097

PATIENT
  Age: 77 Year
  Sex: Male
  Weight: 50 kg

DRUGS (2)
  1. IPILIMUMAB [Suspect]
     Active Substance: IPILIMUMAB
     Indication: Non-small cell lung cancer recurrent
     Dosage: Q6WK
     Route: 041
     Dates: start: 20210311, end: 20210401
  2. NIVOLUMAB [Suspect]
     Active Substance: NIVOLUMAB
     Indication: Non-small cell lung cancer recurrent
     Dosage: Q3WK
     Route: 041
     Dates: start: 20210311, end: 20210401

REACTIONS (8)
  - Myasthenia gravis [Recovering/Resolving]
  - Immune-mediated myocarditis [Not Recovered/Not Resolved]
  - Diarrhoea [Recovering/Resolving]
  - Oral herpes [Recovering/Resolving]
  - Malaise [Unknown]
  - Respiratory failure [Unknown]
  - Lung infiltration [Unknown]
  - Cardiac failure congestive [Unknown]

NARRATIVE: CASE EVENT DATE: 20210312
